FAERS Safety Report 5659538-1 (Version None)
Quarter: 2008Q1

REPORT INFORMATION
  Report Type: 
  Country: None (occurrence: None)
  Receive Date: 20080311
  Receipt Date: 20080225
  Transmission Date: 20080703
  Serious: Yes (Hospitalization, Other)
  Sender: FDA-Public Use
  Company Number: JP-ELI_LILLY_AND_COMPANY-JP200802003709

PATIENT
  Sex: Female
  Weight: 50.7 kg

DRUGS (4)
  1. ATOMOXETINE HCL [Suspect]
     Indication: ATTENTION DEFICIT/HYPERACTIVITY DISORDER
     Dosage: 30 MG, DAILY(1/D)
     Route: 048
     Dates: start: 20060614
  2. ATOMOXETINE HCL [Suspect]
     Dosage: 80 MG, DAILY (1/D)
     Route: 048
     Dates: end: 20071118
  3. ATOMOXETINE HCL [Suspect]
     Dosage: 85 MG, DAILY (1/D)
     Route: 048
     Dates: start: 20071119, end: 20080212
  4. VOALLA [Concomitant]
     Indication: DERMATITIS ATOPIC
     Route: 061
     Dates: start: 20071110

REACTIONS (1)
  - HALLUCINATION [None]
